FAERS Safety Report 4719652-1 (Version None)
Quarter: 2005Q3

REPORT INFORMATION
  Report Type: 
  Country: None (occurrence: None)
  Receive Date: 20050721
  Receipt Date: 20040603
  Transmission Date: 20060218
  Serious: No
  Sender: FDA-Public Use
  Company Number: US-GLAXOSMITHKLINE-A0513273A

PATIENT
  Age: 74 Year
  Sex: Female

DRUGS (12)
  1. AVANDIA [Suspect]
     Dosage: 4MG PER DAY
     Route: 048
     Dates: start: 20040401
  2. ESTRADIOL [Concomitant]
  3. GLYBURIDE [Concomitant]
  4. LEVOXYL [Concomitant]
  5. NEXIUM [Concomitant]
  6. HYDROCHLOROTHIAZIDE [Concomitant]
  7. LEXAPRO [Concomitant]
  8. CANTIL [Concomitant]
  9. MULTI-VITAMIN [Concomitant]
  10. DIOVAN [Concomitant]
  11. LESCOL [Concomitant]
  12. DETROL LA [Concomitant]

REACTIONS (1)
  - OEDEMA PERIPHERAL [None]
